FAERS Safety Report 14833666 (Version 1)
Quarter: 2018Q2

REPORT INFORMATION
  Report Type: Spontaneous
  Country: US (occurrence: US)
  Receive Date: 20180501
  Receipt Date: 20180501
  Transmission Date: 20180711
  Serious: Yes (Other)
  Sender: FDA-Public Use
  Company Number: US-ROCHE-1919011

PATIENT
  Age: 89 Year
  Sex: Male
  Weight: 82.63 kg

DRUGS (1)
  1. AVASTIN [Suspect]
     Active Substance: BEVACIZUMAB
     Indication: NEOVASCULAR AGE-RELATED MACULAR DEGENERATION
     Dosage: R EYE EVERY 5-6 WEEKS, L EYE EVERY 4-5 WEEKS
     Route: 050
     Dates: start: 201606

REACTIONS (2)
  - Off label use [Unknown]
  - Endophthalmitis [Unknown]

NARRATIVE: CASE EVENT DATE: 20170328
